FAERS Safety Report 25033946 (Version 1)
Quarter: 2025Q1

REPORT INFORMATION
  Report Type: Spontaneous
  Country: US (occurrence: US)
  Receive Date: 20250303
  Receipt Date: 20250303
  Transmission Date: 20250409
  Serious: No
  Sender: Haleon PLC
  Company Number: US-HALEON-2207043

PATIENT
  Age: 45 Year
  Sex: Female

DRUGS (2)
  1. DICLOFENAC [Suspect]
     Active Substance: DICLOFENAC
     Indication: Neck pain
  2. DICLOFENAC [Suspect]
     Active Substance: DICLOFENAC
     Indication: Headache

REACTIONS (1)
  - Therapy non-responder [Unknown]
